FAERS Safety Report 9648371 (Version 1)
Quarter: 2013Q4

REPORT INFORMATION
  Report Type: Spontaneous
  Country: US (occurrence: None)
  Receive Date: 20131024
  Receipt Date: 20131024
  Transmission Date: 20140711
  Serious: Yes (Other)
  Sender: FDA-Public Use
  Company Number: 2013-US-002120

PATIENT
  Age: 66 Year
  Sex: Female
  Weight: 77.1 kg

DRUGS (4)
  1. XYREM [Suspect]
     Indication: NARCOLEPSY
     Route: 048
     Dates: start: 200904, end: 200904
  2. XYREM [Suspect]
     Indication: FIBROMYALGIA
     Route: 048
     Dates: start: 200904, end: 200904
  3. LISINOPRIL [Concomitant]
  4. MULTIVITAMINS [Concomitant]

REACTIONS (2)
  - Throat cancer [None]
  - Nausea [None]
